FAERS Safety Report 6122228-5 (Version None)
Quarter: 2009Q1

REPORT INFORMATION
  Report Type: 
  Country: None (occurrence: None)
  Receive Date: 20090316
  Receipt Date: 20090316
  Transmission Date: 20090719
  Serious: Yes (Hospitalization, Other)
  Sender: FDA-Public Use
  Company Number: None

PATIENT
  Age: 39 Year
  Sex: Female
  Weight: 68.0396 kg

DRUGS (1)
  1. OXCARBAZEPINE [Suspect]
     Indication: MANIA
     Dosage: 1 TABLET TWICE DAILY PO
     Route: 048
     Dates: start: 20090310, end: 20090315

REACTIONS (3)
  - FURUNCLE [None]
  - MOUTH ULCERATION [None]
  - RASH GENERALISED [None]
